FAERS Safety Report 12717273 (Version 1)
Quarter: 2016Q3

REPORT INFORMATION
  Report Type: Spontaneous
  Country: US (occurrence: US)
  Receive Date: 20160902
  Receipt Date: 20160902
  Transmission Date: 20161109
  Serious: Yes (Other)
  Sender: FDA-Public Use
  Company Number: None

PATIENT
  Age: 33 Year
  Sex: Female
  Weight: 67.5 kg

DRUGS (9)
  1. ONFI [Suspect]
     Active Substance: CLOBAZAM
     Indication: SEIZURE
     Route: 048
     Dates: start: 20160713
  2. KLONOPIN [Concomitant]
     Active Substance: CLONAZEPAM
  3. CARBATROL [Concomitant]
     Active Substance: CARBAMAZEPINE
  4. DAILY MULTI-VITAMINS [Concomitant]
  5. LEVOTHYROXIN [Concomitant]
     Active Substance: LEVOTHYROXINE
  6. DEPAKOTE [Suspect]
     Active Substance: DIVALPROEX SODIUM
  7. ZANTAC [Concomitant]
     Active Substance: RANITIDINE HYDROCHLORIDE
  8. CBD OIL [Concomitant]
     Active Substance: CANNABIDIOL
  9. CALCIUM [Concomitant]
     Active Substance: CALCIUM

REACTIONS (10)
  - Drug interaction [None]
  - Fatigue [None]
  - Abnormal behaviour [None]
  - Constipation [None]
  - Agitation [None]
  - Depressed level of consciousness [None]
  - Decreased appetite [None]
  - Somnolence [None]
  - Immobile [None]
  - Balance disorder [None]

NARRATIVE: CASE EVENT DATE: 20160813
